FAERS Safety Report 10248511 (Version 6)
Quarter: 2021Q2

REPORT INFORMATION
  Report Type: Report from Study
  Country: DE (occurrence: DE)
  Receive Date: 20140620
  Receipt Date: 20210615
  Transmission Date: 20210716
  Serious: Yes (Life-Threatening, Hospitalization)
  Sender: FDA-Public Use
  Company Number: DE-ROCHE-1069368

PATIENT
  Age: 73 Year
  Sex: Female
  Weight: 62 kg

DRUGS (22)
  1. RITUXIMAB. [Suspect]
     Active Substance: RITUXIMAB
     Indication: FOLLICULAR LYMPHOMA
     Dosage: ON 08/MAY/2012 PATIENT RECEIVED LAST DOSE PRIOR TO SAE: 615 MG/ML 375 ML
     Route: 042
     Dates: start: 20120306
  2. IBUPROFEN. [Concomitant]
     Active Substance: IBUPROFEN
     Indication: BONE PAIN
     Dates: start: 20120515
  3. ZOMETA [Concomitant]
     Active Substance: ZOLEDRONIC ACID
     Dates: start: 20120724, end: 20120724
  4. ZOMETA [Concomitant]
     Active Substance: ZOLEDRONIC ACID
     Dates: start: 20120628, end: 20120628
  5. GRANISETRON [Concomitant]
     Active Substance: GRANISETRON
     Indication: PREMEDICATION
     Dates: start: 20120206, end: 20120619
  6. FENTANYL. [Concomitant]
     Active Substance: FENTANYL
     Indication: BACK PAIN
     Dates: start: 20140914
  7. DOXORUBICIN [Suspect]
     Active Substance: DOXORUBICIN
     Indication: FOLLICULAR LYMPHOMA
     Dosage: LAST DOSE OF DOXORUBICIN TAKEN ON 08/MAY/2014 PRIOR TO SAE: 82 MG
     Route: 042
     Dates: start: 20120306
  8. PARACETAMOL [Concomitant]
     Active Substance: ACETAMINOPHEN
     Indication: PYREXIA
     Dates: start: 20120306, end: 20120821
  9. CELEBREX [Concomitant]
     Active Substance: CELECOXIB
     Indication: BONE PAIN
     Dates: start: 201206
  10. VINCRISTINE [Suspect]
     Active Substance: VINCRISTINE
     Indication: FOLLICULAR LYMPHOMA
     Dosage: MOST RECENT DOSE OF VINCRISTINE WAS TAKEN ON 08/MAY/2012: 2 MG
     Route: 040
     Dates: start: 20120306
  11. RANITIDIN [Concomitant]
     Active Substance: RANITIDINE HYDROCHLORIDE
     Indication: PREMEDICATION
     Dates: start: 20120306, end: 20140811
  12. IRENAT [Concomitant]
     Active Substance: SODIUM PERCHLORATE
     Dates: start: 20121001, end: 20121008
  13. MOVICOL [Concomitant]
     Active Substance: POLYETHYLENE GLYCOL 3350\POTASSIUM CHLORIDE\SODIUM BICARBONATE\SODIUM CHLORIDE
     Indication: CONSTIPATION
     Dates: start: 20120513
  14. PANTOZOL [Concomitant]
     Active Substance: PANTOPRAZOLE SODIUM
     Indication: DYSPEPSIA
     Dates: start: 20120306
  15. NOVALGIN (METAMIZOLE SODIUM) [Concomitant]
     Active Substance: METAMIZOLE SODIUM
     Indication: BONE PAIN
     Dates: start: 20120509
  16. EMEND [Concomitant]
     Active Substance: APREPITANT
     Indication: PREMEDICATION
     Dates: start: 20120306, end: 20120621
  17. CALCILAC [Concomitant]
     Active Substance: CALCIUM CARBONATE
     Indication: HYPERTHYROIDISM
     Dates: start: 20120608
  18. CELEBREX [Concomitant]
     Active Substance: CELECOXIB
     Indication: BACK PAIN
  19. CYCLOPHOSPHAMIDE. [Suspect]
     Active Substance: CYCLOPHOSPHAMIDE
     Indication: FOLLICULAR LYMPHOMA
     Dosage: LAST DOSE OF CYCLOPHOSPHAMIDE RECEIVED ON 08/MAY/2012 PRIOR TO SAE: 1230 MG
     Route: 042
     Dates: start: 20120306
  20. PREDNISOLONE. [Suspect]
     Active Substance: PREDNISOLONE
     Indication: FOLLICULAR LYMPHOMA
     Dosage: MOST RECENT DOSE OF PREDNISOLONE WAS TAKEN ON 08/MAY/2012 PRIOR TO SAE: 100 MG.
     Route: 048
     Dates: start: 20120307
  21. UROMITEXAN [Concomitant]
     Active Substance: MESNA
     Indication: PREMEDICATION
     Dates: start: 20120306, end: 20140811
  22. ACICLOVIR [Concomitant]
     Active Substance: ACYCLOVIR
     Indication: HERPES ZOSTER
     Dates: start: 20120714

REACTIONS (3)
  - Leukopenia [Recovered/Resolved]
  - Neutropenia [Recovered/Resolved]
  - Lumbar vertebral fracture [Not Recovered/Not Resolved]

NARRATIVE: CASE EVENT DATE: 20120509
